FAERS Safety Report 10246762 (Version 2)
Quarter: 2014Q3

REPORT INFORMATION
  Report Type: Report from Study
  Country: US (occurrence: US)
  Receive Date: 20140619
  Receipt Date: 20140926
  Transmission Date: 20150326
  Serious: Yes (Hospitalization)
  Sender: FDA-Public Use
  Company Number: US-BAYER-2014-088027

PATIENT
  Age: 76 Year
  Sex: Female
  Weight: 61.22 kg

DRUGS (13)
  1. BLINDED NAPROXEN SODIUM HIGH DOSE (} 220 MG) [Suspect]
     Active Substance: NAPROXEN SODIUM
     Indication: OSTEOARTHRITIS
     Dosage: UNK
     Route: 048
     Dates: start: 20120929, end: 20130911
  2. METAMUCIL [PLANTAGO OVATA] [Concomitant]
     Dosage: UNK UNK, QD
     Dates: start: 20110519
  3. BLINDED NAPROXEN SODIUM HIGH DOSE (} 220 MG) [Suspect]
     Active Substance: NAPROXEN SODIUM
     Indication: RHEUMATOID ARTHRITIS
  4. VITAMIN B12 [Concomitant]
     Active Substance: CYANOCOBALAMIN
     Dosage: UNK UNK, QD
     Dates: start: 20061128
  5. TRAMADOL [Concomitant]
     Active Substance: TRAMADOL
     Dosage: UNK
     Route: 048
     Dates: start: 20130904
  6. NEXIUM [Concomitant]
     Active Substance: ESOMEPRAZOLE MAGNESIUM
     Dosage: UNK
     Dates: start: 20120929, end: 20130911
  7. BENAZEPRIL [Concomitant]
     Active Substance: BENAZEPRIL\BENAZEPRIL HYDROCHLORIDE
     Dosage: UNK UNK, QD
     Dates: start: 20110519
  8. AMLODIPINE [Concomitant]
     Active Substance: AMLODIPINE BESYLATE
     Dosage: UNK
     Dates: start: 20110907
  9. DICLOFENAC SODIUM. [Suspect]
     Active Substance: DICLOFENAC SODIUM
     Indication: ARTHRITIS
     Dosage: UNK UNK, BID
     Route: 048
     Dates: start: 2013, end: 20140430
  10. HYDROCHLOROTHIAZIDE. [Concomitant]
     Active Substance: HYDROCHLOROTHIAZIDE
     Dosage: UNK
     Route: 048
     Dates: start: 20110519
  11. CITALOPRAM [Concomitant]
     Active Substance: CITALOPRAM HYDROBROMIDE
     Dosage: UNK UNK, QD
  12. BAYER LOW DOSE [Suspect]
     Active Substance: ASPIRIN
     Indication: CARDIOVASCULAR EVENT PROPHYLAXIS
     Dosage: UNK UNK, QD
     Route: 048
     Dates: start: 20081120, end: 20140430
  13. GEMFIBROZIL. [Concomitant]
     Active Substance: GEMFIBROZIL
     Dosage: UNK UNK, BID
     Dates: start: 20110519

REACTIONS (7)
  - Hypotension [None]
  - Medication error [None]
  - Duodenal ulcer haemorrhage [Recovered/Resolved]
  - Abdominal pain upper [Recovered/Resolved]
  - Diarrhoea haemorrhagic [Recovered/Resolved]
  - Mental status changes [None]
  - Vomiting [None]

NARRATIVE: CASE EVENT DATE: 20081120
